FAERS Safety Report 23035450 (Version 2)
Quarter: 2023Q4

REPORT INFORMATION
  Report Type: Report from Study
  Country: US (occurrence: US)
  Receive Date: 20231006
  Receipt Date: 20231219
  Transmission Date: 20240110
  Serious: Yes (Hospitalization)
  Sender: FDA-Public Use
  Company Number: US-ABBVIE-5436929

PATIENT
  Sex: Female
  Weight: 93 kg

DRUGS (1)
  1. HUMIRA [Suspect]
     Active Substance: ADALIMUMAB
     Indication: Crohn^s disease
     Dosage: FORM STRENGTH: 40 MILLIGRAM?CITRATE FREE
     Route: 058

REACTIONS (5)
  - Obstruction [Unknown]
  - Nausea [Unknown]
  - Constipation [Unknown]
  - Abdominal pain upper [Unknown]
  - Unevaluable event [Unknown]
